FAERS Safety Report 7633296-3 (Version None)
Quarter: 2011Q3

REPORT INFORMATION
  Report Type: 
  Country: None (occurrence: None)
  Receive Date: 20110725
  Receipt Date: 20110722
  Transmission Date: 20111222
  Serious: Yes (Other)
  Sender: FDA-Public Use
  Company Number: AR-GLAXOSMITHKLINE-A0936749A

PATIENT
  Age: 44 Year
  Sex: Female
  Weight: 90 kg

DRUGS (2)
  1. NICORETTE [Suspect]
     Dosage: 2MG FOUR TIMES PER DAY
     Route: 002
     Dates: start: 20100919
  2. TRANQUINAL [Concomitant]
     Indication: ANXIETY
     Route: 048

REACTIONS (5)
  - INTENTIONAL DRUG MISUSE [None]
  - GASTROINTESTINAL HAEMORRHAGE [None]
  - DRUG ADMINISTRATION ERROR [None]
  - NICOTINE DEPENDENCE [None]
  - HAEMATOCHEZIA [None]
